FAERS Safety Report 9433719 (Version 2)
Quarter: 2013Q3

REPORT INFORMATION
  Report Type: Spontaneous
  Country: IT (occurrence: IT)
  Receive Date: 20130731
  Receipt Date: 20130820
  Transmission Date: 20140515
  Serious: Yes (Hospitalization)
  Sender: FDA-Public Use
  Company Number: IT-ASTRAZENECA-2013SE56415

PATIENT
  Age: 28277 Day
  Sex: Female

DRUGS (4)
  1. SEROQUEL [Suspect]
     Indication: DEMENTIA WITH LEWY BODIES
     Route: 048
     Dates: start: 20130101, end: 20130629
  2. XANAX [Suspect]
     Indication: DEMENTIA WITH LEWY BODIES
     Route: 048
     Dates: start: 20130101, end: 20130629
  3. XANAX [Suspect]
     Indication: DEMENTIA WITH LEWY BODIES
     Route: 048
  4. CARDIOASPIRIN (ASA) [Concomitant]

REACTIONS (7)
  - Overdose [Unknown]
  - Drug abuse [Recovered/Resolved]
  - Aphasia [Recovered/Resolved]
  - Confusional state [Recovered/Resolved]
  - Vascular encephalopathy [Unknown]
  - Vomiting [Unknown]
  - Off label use [Unknown]
